FAERS Safety Report 9191566 (Version 2)
Quarter: 2013Q2

REPORT INFORMATION
  Report Type: Spontaneous
  Country: SI (occurrence: SI)
  Receive Date: 20130326
  Receipt Date: 20130415
  Transmission Date: 20140414
  Serious: Yes (Other)
  Sender: FDA-Public Use
  Company Number: SI-TEVA-393981ISR

PATIENT
  Sex: Male

DRUGS (8)
  1. VINCRISTINE [Suspect]
     Indication: PLASMA CELL MYELOMA
     Dosage: .4 MILLIGRAM DAILY; 1-4 Q4W
     Route: 065
     Dates: start: 200404, end: 200406
  2. THALIDOMIDE [Suspect]
     Indication: PLASMA CELL MYELOMA
     Dosage: 100 MILLIGRAM DAILY; D1-4 Q4W
     Route: 065
     Dates: start: 200309, end: 200404
  3. BORTEZOMIB [Suspect]
     Indication: PLASMA CELL MYELOMA
     Dosage: .0619 MG/M2 DAILY; D1, 4, 8, 11 Q3W
     Route: 065
     Dates: start: 200503, end: 200505
  4. METHYLPREDNISOLONE [Concomitant]
     Indication: PLASMA CELL MYELOMA
     Dosage: 150 MILLIGRAM DAILY; D1-4 Q4W
     Route: 065
     Dates: start: 200309, end: 200404
  5. EPIRUBICIN [Concomitant]
     Indication: PLASMA CELL MYELOMA
     Dosage: 9 MILLIGRAM DAILY; D1-4 Q4W
     Route: 065
     Dates: start: 200404, end: 200406
  6. DEXAMETHASONE [Concomitant]
     Indication: PLASMA CELL MYELOMA
     Dosage: 40 MILLIGRAM DAILY; D1-4 Q4W
     Route: 065
     Dates: start: 200404, end: 200406
  7. DEXAMETHASONE [Concomitant]
     Indication: PLASMA CELL MYELOMA
     Dosage: 40 MG/DAY D1-4 Q4W
     Route: 065
     Dates: start: 200410, end: 200411
  8. ARSENIC TRIOXIDE [Concomitant]
     Indication: PLASMA CELL MYELOMA
     Dosage: 10 MG/M2 DAILY; D1-4 Q4W
     Route: 042
     Dates: start: 200410, end: 200411

REACTIONS (1)
  - Neuropathy peripheral [Unknown]
